FAERS Safety Report 8948061 (Version 1)
Quarter: 2012Q4

REPORT INFORMATION
  Report Type: Spontaneous
  Country: US (occurrence: None)
  Receive Date: 20121203
  Receipt Date: 20121203
  Transmission Date: 20130627
  Serious: No
  Sender: FDA-Public Use
  Company Number: None

PATIENT
  Sex: Female

DRUGS (2)
  1. DEXTROMETHORPHAN HBR AND GUAIFENESIN [Suspect]
     Indication: COUGH
     Dosage: Lot: 2f345162  EXP: 30jun2014
  2. DEXTROMETHORPHAN HBR AND GUAIFENESIN [Suspect]
     Dosage: Lot: 1m327235  Exp: 31aug2014

REACTIONS (2)
  - Product commingling [None]
  - Product packaging quantity issue [None]
